FAERS Safety Report 20652164 (Version 2)
Quarter: 2023Q2

REPORT INFORMATION
  Report Type: Spontaneous
  Country: MO (occurrence: MO)
  Receive Date: 20220330
  Receipt Date: 20230607
  Transmission Date: 20230722
  Serious: Yes (Life-Threatening, Hospitalization, Other)
  Sender: FDA-Public Use
  Company Number: MO-SUN PHARMACEUTICAL INDUSTRIES LTD-2022R1-331161

PATIENT
  Age: 44 Year
  Sex: Female

DRUGS (1)
  1. METHADONE [Suspect]
     Active Substance: METHADONE HYDROCHLORIDE
     Indication: Drug dependence
     Dosage: 130 MILLIGRAM, DAILY
     Route: 065

REACTIONS (3)
  - Ventricular tachycardia [Unknown]
  - Long QT syndrome [Unknown]
  - Torsade de pointes [Unknown]
